FAERS Safety Report 5551766-9 (Version None)
Quarter: 2007Q4

REPORT INFORMATION
  Report Type: 
  Country: None (occurrence: None)
  Receive Date: 20071212
  Receipt Date: 20071130
  Transmission Date: 20080405
  Serious: Yes (Life-Threatening, Other)
  Sender: FDA-Public Use
  Company Number: US-ELI_LILLY_AND_COMPANY-US200711006886

PATIENT
  Age: 55 Year
  Sex: Female
  Weight: 83.9 kg

DRUGS (4)
  1. CYMBALTA [Suspect]
     Indication: DEPRESSION
     Dosage: 1 D/F, UNK
     Dates: start: 20070401
  2. CYMBALTA [Suspect]
     Dosage: 60 MG, DAILY (1/D)
     Dates: end: 20070926
  3. DARVOCET [Concomitant]
     Dosage: 1 D/F, UNK
  4. SOMA [Concomitant]
     Dosage: 1 D/F, UNK

REACTIONS (2)
  - ALCOHOL USE [None]
  - HEADACHE [None]
